FAERS Safety Report 5761175-5 (Version None)
Quarter: 2008Q2

REPORT INFORMATION
  Report Type: 
  Country: None (occurrence: None)
  Receive Date: 20080606
  Receipt Date: 20080527
  Transmission Date: 20081010
  Serious: Yes (Death, Congenital Anomaly)
  Sender: FDA-Public Use
  Company Number: B0522645B

PATIENT

DRUGS (1)
  1. ZOPHREN [Suspect]
     Indication: DRUG USE FOR UNKNOWN INDICATION
     Dates: start: 20070101, end: 20070101

REACTIONS (7)
  - ANAL ATRESIA [None]
  - CAUDAL REGRESSION SYNDROME [None]
  - CONGENITAL GENITAL MALFORMATION [None]
  - CONGENITAL RENAL DISORDER [None]
  - CONGENITAL UTERINE ANOMALY [None]
  - DRUG EXPOSURE DURING PREGNANCY [None]
  - HEMIVERTEBRA [None]
